FAERS Safety Report 7642993-5 (Version None)
Quarter: 2011Q3

REPORT INFORMATION
  Report Type: 
  Country: None (occurrence: None)
  Receive Date: 20110728
  Receipt Date: 20110725
  Transmission Date: 20111222
  Serious: Yes (Hospitalization)
  Sender: FDA-Public Use
  Company Number: US-AMGEN-USACT2011037618

PATIENT
  Age: 73 Year
  Sex: Female
  Weight: 63.6 kg

DRUGS (18)
  1. PLACEBO [Suspect]
     Indication: CARDIAC FAILURE
     Dates: start: 20110506
  2. VITAMIN D [Concomitant]
     Dosage: UNK
     Dates: start: 20110616
  3. COREG [Concomitant]
     Dosage: 25 MG, BID
     Route: 048
  4. LASIX [Concomitant]
     Dosage: 20 MG, QD
     Route: 048
  5. ASCORBIC ACID [Concomitant]
     Route: 048
  6. BLINDED DARBEPOETIN ALFA [Suspect]
     Indication: CARDIAC FAILURE
     Dates: start: 20110506
  7. SPIRIVA [Concomitant]
     Route: 048
  8. IMDUR [Concomitant]
     Dosage: 30 MG, BID
     Route: 048
  9. TRICOR [Concomitant]
     Dosage: 145 MG, QD
     Route: 048
  10. AMBIEN [Concomitant]
     Dosage: 10 MG, PRN
     Route: 048
  11. ADVAIR DISKUS 100/50 [Concomitant]
  12. SODIUM BICARBONATE [Concomitant]
     Dosage: 650 MG, BID
     Route: 048
  13. DUONEB [Concomitant]
     Route: 055
  14. FERROUS SULFATE TAB [Concomitant]
     Dosage: 325 MG, BID
     Route: 048
  15. FISH OIL [Concomitant]
     Dosage: UNK UNK, BID
  16. HYDRALAZINE HCL [Concomitant]
     Dosage: 100 MG, TID
     Route: 048
  17. COUMADIN [Concomitant]
  18. ZOCOR [Concomitant]
     Dosage: 20 MG, QD
     Route: 048

REACTIONS (1)
  - CHRONIC LEFT VENTRICULAR FAILURE [None]
